FAERS Safety Report 7331409-4 (Version None)
Quarter: 2011Q1

REPORT INFORMATION
  Report Type: 
  Country: None (occurrence: None)
  Receive Date: 20110228
  Receipt Date: 20110228
  Transmission Date: 20110831
  Serious: Yes (Hospitalization)
  Sender: FDA-Public Use
  Company Number: None

PATIENT
  Age: 72 Year
  Sex: Female
  Weight: 47.1741 kg

DRUGS (1)
  1. AVELOX TABLETS-BAYER HEALTH CARE [Suspect]
     Indication: ACUTE SINUSITIS
     Dosage: 1 DAILY
     Dates: start: 20110112, end: 20110122

REACTIONS (6)
  - MELAENA [None]
  - DIARRHOEA HAEMORRHAGIC [None]
  - VOMITING [None]
  - MUSCLE SPASMS [None]
  - ABDOMINAL PAIN UPPER [None]
  - DEHYDRATION [None]
